FAERS Safety Report 5164309-9 (Version None)
Quarter: 2006Q4

REPORT INFORMATION
  Report Type: 
  Country: None (occurrence: None)
  Receive Date: 20061129
  Receipt Date: 20061129
  Transmission Date: 20070319
  Serious: No
  Sender: FDA-Public Use
  Company Number: None

PATIENT
  Age: 49 Year
  Sex: Female
  Weight: 65.7716 kg

DRUGS (1)
  1. ZOLOFT [Suspect]
     Indication: ANXIETY DISORDER
     Dosage: 25 MG X 7 50 MG X 14 ONCE DAILY PO
     Route: 048
     Dates: start: 20060530, end: 20060614

REACTIONS (9)
  - CONTUSION [None]
  - DIZZINESS [None]
  - DYSPNOEA [None]
  - EPISTAXIS [None]
  - FEELING ABNORMAL [None]
  - HYPERTENSION [None]
  - MOVEMENT DISORDER [None]
  - MUSCLE RIGIDITY [None]
  - VERTIGO [None]
